FAERS Safety Report 5954857-3 (Version None)
Quarter: 2008Q4

REPORT INFORMATION
  Report Type: 
  Country: None (occurrence: None)
  Receive Date: 20081113
  Receipt Date: 20081113
  Transmission Date: 20090506
  Serious: Yes (Hospitalization)
  Sender: FDA-Public Use
  Company Number: None

PATIENT
  Age: 43 Year
  Sex: Female
  Weight: 52.1637 kg

DRUGS (1)
  1. ACTONEL [Suspect]
     Indication: OSTEOPOROSIS
     Dosage: ONE PILL ONCE/MONTH
     Dates: start: 20081109, end: 20081109

REACTIONS (8)
  - ACTIVITIES OF DAILY LIVING IMPAIRED [None]
  - BACK PAIN [None]
  - CHEST PAIN [None]
  - DIARRHOEA [None]
  - GAIT DISTURBANCE [None]
  - HEADACHE [None]
  - INFLUENZA LIKE ILLNESS [None]
  - VISION BLURRED [None]
